FAERS Safety Report 5301751-7 (Version None)
Quarter: 2007Q2

REPORT INFORMATION
  Report Type: 
  Country: None (occurrence: None)
  Receive Date: 20070419
  Receipt Date: 20070412
  Transmission Date: 20071010
  Serious: Yes (Life-Threatening, Hospitalization)
  Sender: FDA-Public Use
  Company Number: JP-JNJFOC-20061003373

PATIENT
  Sex: Male

DRUGS (13)
  1. RISPERDAL [Suspect]
     Route: 048
  2. RISPERDAL [Suspect]
     Route: 048
  3. RISPERDAL [Suspect]
     Route: 048
  4. RISPERDAL [Suspect]
     Route: 048
  5. RISPERDAL [Suspect]
     Indication: CONFUSIONAL STATE
     Route: 048
  6. VEGETAMIN-A [Suspect]
     Indication: SCHIZOPHRENIA
     Route: 048
  7. ZYPREXA [Concomitant]
     Indication: SCHIZOPHRENIA
     Route: 048
  8. DIOVAN [Concomitant]
     Indication: HYPERTENSION
     Route: 048
  9. NORVASC [Concomitant]
     Indication: HYPERTENSION
     Route: 048
  10. CONAN [Concomitant]
     Indication: HYPERTENSION
     Route: 048
  11. FORSENID [Concomitant]
     Indication: CONSTIPATION
     Route: 048
  12. AKIRIDEN [Concomitant]
     Indication: PARKINSONISM
     Route: 048
  13. MAGNESIUM OXIDE [Concomitant]
     Indication: CONSTIPATION
     Route: 048

REACTIONS (1)
  - RHABDOMYOLYSIS [None]
